FAERS Safety Report 17655440 (Version 5)
Quarter: 2020Q2

REPORT INFORMATION
  Report Type: Spontaneous
  Country: US (occurrence: US)
  Receive Date: 20200410
  Receipt Date: 20200601
  Transmission Date: 20200713
  Serious: No
  Sender: FDA-Public Use
  Company Number: US-PFIZER INC-2020146464

PATIENT
  Age: 67 Year
  Sex: Female
  Weight: 53.52 kg

DRUGS (4)
  1. PREMARIN [Suspect]
     Active Substance: ESTROGENS, CONJUGATED
     Indication: HYSTERECTOMY
  2. PROGESTERONE. [Concomitant]
     Active Substance: PROGESTERONE
     Dosage: UNK
     Dates: end: 2012
  3. PREMARIN [Suspect]
     Active Substance: ESTROGENS, CONJUGATED
     Indication: HORMONE THERAPY
     Dosage: 1.25 MG, DAILY
     Route: 048
     Dates: start: 1987
  4. PREMARIN [Suspect]
     Active Substance: ESTROGENS, CONJUGATED
     Indication: MENOPAUSE

REACTIONS (9)
  - Somnolence [Recovered/Resolved]
  - Asthma [Unknown]
  - Crying [Recovered/Resolved]
  - Micturition urgency [Recovered/Resolved]
  - Fatigue [Recovered/Resolved]
  - Insomnia [Unknown]
  - Urinary incontinence [Unknown]
  - Nervousness [Unknown]
  - Pruritus [Unknown]
